FAERS Safety Report 9730201 (Version 1)
Quarter: 2013Q4

REPORT INFORMATION
  Report Type: Spontaneous
  Country: US (occurrence: US)
  Receive Date: 20131204
  Receipt Date: 20131204
  Transmission Date: 20140711
  Serious: No
  Sender: FDA-Public Use
  Company Number: US-ENDO PHARMACEUTICALS INC.-APIR20130001

PATIENT
  Sex: Female

DRUGS (1)
  1. ALPRAZOLAM IR TABLETS 0.25MG [Suspect]
     Indication: ANXIETY
     Route: 048
     Dates: end: 20130103

REACTIONS (1)
  - Abdominal discomfort [Not Recovered/Not Resolved]
